FAERS Safety Report 15430023 (Version 2)
Quarter: 2019Q1

REPORT INFORMATION
  Report Type: Spontaneous
  Country: JP (occurrence: JP)
  Receive Date: 20180926
  Receipt Date: 20190125
  Transmission Date: 20190417
  Serious: Yes (Hospitalization, Other)
  Sender: FDA-Public Use
  Company Number: JP-PFIZER INC-2018381172

PATIENT
  Age: 42 Year
  Sex: Male
  Weight: 58.5 kg

DRUGS (4)
  1. ZYVOX [Suspect]
     Active Substance: LINEZOLID
     Dosage: 600 MG, 2X/DAY
     Route: 041
     Dates: start: 20180830, end: 20180918
  2. CUBICIN [Concomitant]
     Active Substance: DAPTOMYCIN
     Dosage: 350 MG, 1X/DAY
     Route: 041
     Dates: start: 20180731, end: 20180921
  3. ZYVOX [Suspect]
     Active Substance: LINEZOLID
     Indication: ARTHRITIS BACTERIAL
     Dosage: 600 MG, 2X/DAY
     Route: 041
     Dates: start: 20180719, end: 20180730
  4. CEFAZOLIN SODIUM. [Concomitant]
     Active Substance: CEFAZOLIN SODIUM
     Dosage: 2 G, 3X/DAY
     Route: 041
     Dates: start: 20180822, end: 20180925

REACTIONS (1)
  - Neutropenia [Recovered/Resolved]

NARRATIVE: CASE EVENT DATE: 20180918
